FAERS Safety Report 14909272 (Version 10)
Quarter: 2019Q2

REPORT INFORMATION
  Report Type: Spontaneous
  Country: CA (occurrence: CA)
  Receive Date: 20180517
  Receipt Date: 20190612
  Transmission Date: 20190711
  Serious: Yes (Hospitalization, Other)
  Sender: FDA-Public Use
  Company Number: CA-CELLTRION INC.-2018CA019786

PATIENT

DRUGS (8)
  1. INFLECTRA [Suspect]
     Active Substance: INFLIXIMAB-DYYB
     Dosage: UNK, WEEK 2, 6 THEN Q 8 WEEKS
     Route: 042
     Dates: start: 20181004, end: 20181004
  2. SOLU-MEDROL [Concomitant]
     Active Substance: METHYLPREDNISOLONE SODIUM SUCCINATE
     Dosage: UNK
     Route: 065
     Dates: start: 20180501
  3. INFLECTRA [Suspect]
     Active Substance: INFLIXIMAB-DYYB
     Dosage: 5 MG/KG AT WEEK 0, 2, 6 THEN Q 8 WEEKS
     Route: 042
     Dates: start: 20190322, end: 20190322
  4. INFLECTRA [Suspect]
     Active Substance: INFLIXIMAB-DYYB
     Indication: CROHN^S DISEASE
     Dosage: 5 MG/KG AT WEEK 0, 2, 6 THEN Q 8 WEEKS
     Route: 042
     Dates: start: 20180504, end: 20180504
  5. INFLECTRA [Suspect]
     Active Substance: INFLIXIMAB-DYYB
     Dosage: 5 MG/KG (500 MG), 6 WEEKS AFTER LAST INFUSION
     Route: 042
     Dates: start: 20190124, end: 20190124
  6. METHOTREXATE. [Concomitant]
     Active Substance: METHOTREXATE
     Dosage: 12.5 MG, WEEKLY
     Route: 065
     Dates: start: 20180504, end: 20181214
  7. INFLECTRA [Suspect]
     Active Substance: INFLIXIMAB-DYYB
     Dosage: 5 MG/KG AT WEEK 2, 6 THEN Q 8 WEEKS
     Route: 042
     Dates: start: 20181130, end: 20181130
  8. INFLECTRA [Suspect]
     Active Substance: INFLIXIMAB-DYYB
     Dosage: 5 MG/KG AT WEEK 0, 2, 6 THEN Q 8 WEEKS
     Route: 042
     Dates: start: 20190516, end: 20190516

REACTIONS (7)
  - Rectal haemorrhage [Unknown]
  - Drug ineffective [Recovering/Resolving]
  - Haematochezia [Unknown]
  - Pyrexia [Unknown]
  - Product use issue [Unknown]
  - Condition aggravated [Recovered/Resolved]
  - Off label use [Unknown]

NARRATIVE: CASE EVENT DATE: 20180506
